FAERS Safety Report 5209969-9 (Version None)
Quarter: 2006Q4

REPORT INFORMATION
  Report Type: 
  Country: None (occurrence: None)
  Receive Date: 20061128
  Receipt Date: 20060929
  Transmission Date: 20070319
  Serious: Yes (Other)
  Sender: FDA-Public Use
  Company Number: 2006105122

PATIENT
  Age: 71 Year
  Sex: Male

DRUGS (14)
  1. TIKOSYN [Suspect]
     Indication: ATRIAL FIBRILLATION
     Dosage: SEE IMAGE
     Route: 048
     Dates: start: 20050801, end: 20060201
  2. TIKOSYN [Suspect]
     Indication: ATRIAL FIBRILLATION
     Dosage: SEE IMAGE
     Route: 048
     Dates: start: 20060301
  3. SYNTHROID [Suspect]
     Dosage: SEE IMAGE
     Route: 048
  4. CARDIZEM [Concomitant]
  5. INSULIN (INSULIN) [Concomitant]
  6. PLAVIX [Concomitant]
  7. WARFARIN SODIUM [Concomitant]
  8. ASPIRIN [Concomitant]
  9. NEXIUM [Concomitant]
  10. FLOMAX ^CHIESI^ (MORNIFLUMATE) [Concomitant]
  11. CRESTOR [Concomitant]
  12. SINGULAIR [Concomitant]
  13. ANTIHISTAMINES (ANTIHISTAMINES) [Concomitant]
  14. FOLTX (CYANOCOBALAMIN, FOLIC ACID, PYRIDOXINE) [Concomitant]

REACTIONS (2)
  - ATRIAL FIBRILLATION [None]
  - DYSPHAGIA [None]
